FAERS Safety Report 6864894-2 (Version None)
Quarter: 2010Q3

REPORT INFORMATION
  Report Type: 
  Country: None (occurrence: None)
  Receive Date: 20100721
  Receipt Date: 20080503
  Transmission Date: 20110219
  Serious: No
  Sender: FDA-Public Use
  Company Number: US-PFIZER INC-2008030269

PATIENT
  Sex: Male
  Weight: 78 kg

DRUGS (9)
  1. CHANTIX [Suspect]
     Indication: SMOKING CESSATION THERAPY
     Dates: start: 20080328, end: 20080502
  2. TRICOR [Concomitant]
  3. LIPITOR [Concomitant]
  4. ACETYLSALICYLIC ACID [Concomitant]
  5. ALTACE [Concomitant]
  6. ZETIA [Concomitant]
  7. TOPROL-XL [Concomitant]
  8. CARDIAC THERAPY [Concomitant]
  9. FENTANYL [Concomitant]
     Route: 062
     Dates: end: 20080501

REACTIONS (4)
  - BLOOD GLUCOSE INCREASED [None]
  - NAUSEA [None]
  - RASH [None]
  - TOBACCO WITHDRAWAL SYMPTOMS [None]
